FAERS Safety Report 12298704 (Version 1)
Quarter: 2016Q2

REPORT INFORMATION
  Report Type: Spontaneous
  Country: US (occurrence: US)
  Receive Date: 20160425
  Receipt Date: 20160425
  Transmission Date: 20160815
  Serious: Yes (Other)
  Sender: FDA-Public Use
  Company Number: US-HOSPIRA-3259625

PATIENT
  Age: 81 Year
  Sex: Female

DRUGS (2)
  1. NEOSYNEPHRINE [Concomitant]
     Active Substance: PHENYLEPHRINE HYDROCHLORIDE
     Indication: PRODUCT USED FOR UNKNOWN INDICATION
  2. LEVOPHED [Suspect]
     Active Substance: NOREPINEPHRINE BITARTRATE
     Indication: BLOOD PRESSURE DECREASED
     Dosage: 168 MG OF L-NE BASE PER DAY
     Route: 041

REACTIONS (3)
  - Infusion site ulcer [Unknown]
  - Infusion site necrosis [Unknown]
  - Myocarditis [Unknown]
